FAERS Safety Report 18635932 (Version 2)
Quarter: 2021Q1

REPORT INFORMATION
  Report Type: Report from Study
  Country: US (occurrence: US)
  Receive Date: 20201218
  Receipt Date: 20210131
  Transmission Date: 20210419
  Serious: Yes (Death, Other)
  Sender: FDA-Public Use
  Company Number: US-ASTRAZENECA-2020SF68744

PATIENT
  Age: 32716 Day
  Sex: Male
  Weight: 55.3 kg

DRUGS (5)
  1. MORPHINE [Concomitant]
     Active Substance: MORPHINE
  2. OXYGEN. [Concomitant]
     Active Substance: OXYGEN
  3. TAGRISSO [Suspect]
     Active Substance: OSIMERTINIB
     Indication: METASTASES TO CENTRAL NERVOUS SYSTEM
     Route: 048
     Dates: start: 20201012, end: 20201127
  4. TAGRISSO [Suspect]
     Active Substance: OSIMERTINIB
     Indication: LUNG NEOPLASM MALIGNANT
     Route: 048
     Dates: start: 20201012, end: 20201127
  5. TAGRISSO [Suspect]
     Active Substance: OSIMERTINIB
     Indication: NEOPLASM MALIGNANT
     Route: 048
     Dates: start: 20201012, end: 20201127

REACTIONS (18)
  - Diarrhoea [Unknown]
  - Dysphagia [Unknown]
  - Mastication disorder [Unknown]
  - Cardiovascular disorder [Unknown]
  - Hypersomnia [Fatal]
  - Decreased appetite [Fatal]
  - Respiratory rate increased [Unknown]
  - Productive cough [Unknown]
  - Asthenia [Fatal]
  - Hospice care [Unknown]
  - Fall [Unknown]
  - Sleep disorder [Unknown]
  - Cyanosis [Unknown]
  - Malignant neoplasm progression [Unknown]
  - Gait disturbance [Unknown]
  - Hypophagia [Unknown]
  - Sitting disability [Unknown]
  - Abdominal distension [Unknown]

NARRATIVE: CASE EVENT DATE: 20201030
